FAERS Safety Report 17555138 (Version 1)
Quarter: 2020Q1

REPORT INFORMATION
  Report Type: Spontaneous
  Country: RO (occurrence: RO)
  Receive Date: 20200318
  Receipt Date: 20200318
  Transmission Date: 20200409
  Serious: Yes (Life-Threatening, Hospitalization)
  Sender: FDA-Public Use
  Company Number: RO-JNJFOC-20200311551

PATIENT
  Age: 48 Year
  Sex: Male

DRUGS (2)
  1. CELEBREX [Concomitant]
     Active Substance: CELECOXIB
     Indication: SPONDYLITIS
     Dosage: 200 MG WHEN REQUIRED
     Route: 065
  2. REMICADE [Suspect]
     Active Substance: INFLIXIMAB
     Indication: SPONDYLITIS
     Dosage: 400 MG
     Route: 042
     Dates: start: 20170703, end: 20190912

REACTIONS (7)
  - Jaundice [Recovered/Resolved]
  - Off label use [Unknown]
  - Fatigue [Recovered/Resolved]
  - Hepatitis A [Recovered/Resolved]
  - Nausea [Recovered/Resolved]
  - Product use in unapproved indication [Unknown]
  - Asthenia [Recovered/Resolved]

NARRATIVE: CASE EVENT DATE: 20170703
